FAERS Safety Report 6414193-8 (Version None)
Quarter: 2009Q4

REPORT INFORMATION
  Report Type: 
  Country: None (occurrence: None)
  Receive Date: 20091026
  Receipt Date: 20091014
  Transmission Date: 20100525
  Serious: Yes (Life-Threatening, Hospitalization)
  Sender: FDA-Public Use
  Company Number: TR-PFIZER INC-2009284157

PATIENT

DRUGS (1)
  1. GENOTROPIN [Suspect]
     Dosage: 5.3 MG, UNK

REACTIONS (1)
  - SUICIDE ATTEMPT [None]
